FAERS Safety Report 13600084 (Version 12)
Quarter: 2018Q3

REPORT INFORMATION
  Report Type: Report from Study
  Country: DE (occurrence: DE)
  Receive Date: 20170601
  Receipt Date: 20180723
  Transmission Date: 20181010
  Serious: Yes (Death, Hospitalization)
  Sender: FDA-Public Use
  Company Number: DE-BIOGEN-2017BI00409644

PATIENT
  Age: 26 Year
  Sex: Female
  Weight: 96 kg

DRUGS (6)
  1. ZINBRYTA [Suspect]
     Active Substance: DACLIZUMAB
     Indication: RELAPSING-REMITTING MULTIPLE SCLEROSIS
     Dosage: TOTAL OF 4 INJECTIONS, ON 18 JAN 2017, 20 FEB 2017, 24 MAR 2017, AND 24 APR 2017.
     Route: 058
     Dates: start: 20170118, end: 20170424
  2. SIRDALUD [Concomitant]
     Active Substance: TIZANIDINE
     Indication: MUSCLE SPASTICITY
     Route: 065
     Dates: start: 201703
  3. DEKRISTOL [Concomitant]
     Active Substance: CHOLECALCIFEROL
     Route: 048
  4. DEKRISTOL [Concomitant]
     Active Substance: CHOLECALCIFEROL
     Indication: VITAMIN D DEFICIENCY
     Route: 048
     Dates: start: 201701
  5. SIRDALUD [Concomitant]
     Active Substance: TIZANIDINE
     Route: 048
     Dates: start: 201701, end: 201704
  6. PREDNISOLON [Concomitant]
     Active Substance: PREDNISOLONE
     Indication: MULTIPLE SCLEROSIS
     Dosage: 5 DOSES
     Route: 042
     Dates: start: 201701

REACTIONS (8)
  - Shock haemorrhagic [Fatal]
  - Systemic inflammatory response syndrome [Fatal]
  - Transplant dysfunction [Fatal]
  - Pyrexia [Unknown]
  - Renal artery thrombosis [Fatal]
  - Acute hepatic failure [Fatal]
  - Pulmonary embolism [Unknown]
  - Gastric ulcer haemorrhage [Fatal]

NARRATIVE: CASE EVENT DATE: 201705
